FAERS Safety Report 15462263 (Version 1)
Quarter: 2018Q4

REPORT INFORMATION
  Report Type: Spontaneous
  Country: US (occurrence: US)
  Receive Date: 20181003
  Receipt Date: 20181003
  Transmission Date: 20190204
  Serious: Yes (Other)
  Sender: FDA-Public Use
  Company Number: US-INDIVIOR LIMITED-INDV-114321-2017

PATIENT
  Age: 60 Year
  Sex: Male

DRUGS (1)
  1. SUBOXONE [Suspect]
     Active Substance: BUPRENORPHINE HYDROCHLORIDE\NALOXONE HYDROCHLORIDE
     Indication: PAIN
     Dosage: 4 MG, TID
     Route: 065

REACTIONS (6)
  - Off label use [Recovered/Resolved]
  - Loss of consciousness [Recovered/Resolved]
  - Feeling abnormal [Recovered/Resolved]
  - Product use issue [Recovered/Resolved]
  - Weight decreased [Recovered/Resolved]
  - Vision blurred [Recovered/Resolved]
